FAERS Safety Report 4790940-6 (Version None)
Quarter: 2005Q3

REPORT INFORMATION
  Report Type: 
  Country: None (occurrence: None)
  Receive Date: 20050914
  Receipt Date: 20040811
  Transmission Date: 20060218
  Serious: Yes (Other)
  Sender: FDA-Public Use
  Company Number: 163-20785-04050140

PATIENT
  Age: 61 Year
  Sex: Male

DRUGS (6)
  1. THALOMID [Suspect]
     Indication: MULTIPLE MYELOMA
     Dosage: 400 MG, DAILY, ORAL
     Route: 048
     Dates: start: 20040312, end: 20040426
  2. DECADRON [Concomitant]
  3. OXYCONTIN [Concomitant]
  4. LASIX [Concomitant]
  5. COLACE (DOCUSATE SODIUM) [Concomitant]
  6. ZOMETA [Concomitant]

REACTIONS (1)
  - DEEP VEIN THROMBOSIS [None]
